FAERS Safety Report 19258413 (Version 1)
Quarter: 2021Q2

REPORT INFORMATION
  Report Type: Report from Study
  Country: CN (occurrence: CN)
  Receive Date: 20210514
  Receipt Date: 20210514
  Transmission Date: 20210717
  Serious: Yes (Death)
  Sender: FDA-Public Use
  Company Number: CN-BEIGENE-BGN-2021-001073

PATIENT

DRUGS (15)
  1. LEVOTHYROXINE. [Concomitant]
     Active Substance: LEVOTHYROXINE
     Indication: HYPOTHYROIDISM
     Dosage: 50 MICROGRAM, QD
     Route: 048
     Dates: start: 20210113, end: 20210415
  2. AROTINOLOL HYDROCHLORIDE [Concomitant]
     Active Substance: AROTINOLOL HYDROCHLORIDE
     Indication: HYPERTENSION
     Dosage: 10 MILLIGRAM, QD
     Route: 048
     Dates: start: 20210208, end: 20210415
  3. CEFIXIME. [Concomitant]
     Active Substance: CEFIXIME
     Indication: URINARY TRACT INFECTION
     Dosage: 2 CAPSULES, BID
     Route: 048
     Dates: start: 20210409, end: 20210415
  4. INDOBUFEN [Concomitant]
     Active Substance: INDOBUFEN
     Indication: PLATELET AGGREGATION INHIBITION
     Dosage: 0.1 GRAM, BID
     Route: 048
     Dates: start: 20210120, end: 20210415
  5. HYDROXYCHLOROQUINE [Concomitant]
     Active Substance: HYDROXYCHLOROQUINE
     Indication: LUPUS NEPHRITIS
     Dosage: 0.1 GRAM, BID
     Route: 048
     Dates: start: 20210202, end: 20210415
  6. TRIAMCINOLONE [Concomitant]
     Active Substance: TRIAMCINOLONE
     Indication: LUPUS NEPHRITIS
     Dosage: 28 MILLIGRAM, QD
     Route: 048
     Dates: start: 20210408, end: 20210415
  7. ZANUBRUTINIB [Suspect]
     Active Substance: ZANUBRUTINIB
     Indication: LUPUS NEPHRITIS
     Dosage: 40 MG, PO BID OR 160 MG PO, QD OR 160 MG PO BID
     Route: 048
     Dates: start: 20210216, end: 20210415
  8. ULTIBRO BREEZHALER [Concomitant]
     Active Substance: GLYCOPYRRONIUM\INDACATEROL
     Indication: CHRONIC OBSTRUCTIVE PULMONARY DISEASE
     Dosage: 1 CAPSULE, QD
     Route: 048
     Dates: start: 20210219, end: 20210415
  9. FELODIPINE. [Concomitant]
     Active Substance: FELODIPINE
     Indication: HYPERTENSION
     Dosage: 5 MILLIGRAM, QD
     Route: 048
     Dates: start: 20210222, end: 20210415
  10. PRAVASTATIN. [Concomitant]
     Active Substance: PRAVASTATIN
     Indication: HYPERLIPIDAEMIA
     Dosage: 40 MILLIGRAM, QD
     Route: 048
     Dates: start: 20210113, end: 20210415
  11. TRIMEBUTINE MALEATE [Concomitant]
     Active Substance: TRIMEBUTINE MALEATE
     Indication: GASTROINTESTINAL MOTILITY DISORDER
     Dosage: 100 MILLIGRAM, TID
     Route: 048
     Dates: start: 20210121, end: 20210415
  12. CALCITROL [Concomitant]
     Indication: PROPHYLAXIS
     Dosage: 0.25 MICROGRAM, QD
     Route: 048
     Dates: start: 20210129, end: 20210415
  13. LOSARTAN POTASSIUM. [Concomitant]
     Active Substance: LOSARTAN POTASSIUM
     Indication: BLOOD PRESSURE MANAGEMENT
     Dosage: 2 TABLETS, QD
     Route: 048
     Dates: start: 20210208, end: 20210415
  14. MYCOPHENOLATEMOFETIL ACCORD [Concomitant]
     Active Substance: MYCOPHENOLATE MOFETIL
     Indication: LUPUS NEPHRITIS
     Dosage: 0.75 GRAM, BID
     Route: 048
     Dates: start: 20210404, end: 20210415
  15. FEBUXOSTAT. [Concomitant]
     Active Substance: FEBUXOSTAT
     Indication: HYPERURICAEMIA
     Dosage: 1 TABLET, QOD
     Route: 048
     Dates: start: 20210222, end: 20210415

REACTIONS (1)
  - Pneumocystis jirovecii pneumonia [Fatal]

NARRATIVE: CASE EVENT DATE: 20210413
